FAERS Safety Report 18832192 (Version 1)
Quarter: 2021Q1

REPORT INFORMATION
  Report Type: Spontaneous
  Country: US (occurrence: US)
  Receive Date: 20210202
  Receipt Date: 20210202
  Transmission Date: 20210419
  Serious: Yes (Death)
  Sender: FDA-Public Use
  Company Number: None

PATIENT

DRUGS (1)
  1. CYCLOPHOSPHAMIDE 50MG CAPSULES [Suspect]
     Active Substance: CYCLOPHOSPHAMIDE
     Indication: NEOPLASM MALIGNANT
     Dosage: ?          QUANTITY:11 CAPSULES;OTHER FREQUENCY:DAYS 1,8,15,22 PER;?
     Route: 048
     Dates: start: 20190717

REACTIONS (1)
  - Death [None]
